FAERS Safety Report 4672804-1 (Version None)
Quarter: 2005Q2

REPORT INFORMATION
  Report Type: 
  Country: None (occurrence: None)
  Receive Date: 20050523
  Receipt Date: 20050517
  Transmission Date: 20051028
  Serious: Yes (Disabling)
  Sender: FDA-Public Use
  Company Number: GBWYE673217MAY05

PATIENT
  Age: 49 Year
  Sex: Female

DRUGS (1)
  1. EFFEXOR [Suspect]
     Indication: DEPRESSION
     Dosage: 75MG, ORAL
     Route: 048
     Dates: start: 20040501, end: 20050201

REACTIONS (4)
  - DRUG WITHDRAWAL SYNDROME [None]
  - EYE MOVEMENT DISORDER [None]
  - PARAESTHESIA [None]
  - TINNITUS [None]
